FAERS Safety Report 7180607-1 (Version None)
Quarter: 2010Q4

REPORT INFORMATION
  Report Type: 
  Country: None (occurrence: None)
  Receive Date: 20101221
  Receipt Date: 20101214
  Transmission Date: 20110411
  Serious: Yes (Death, Other)
  Sender: FDA-Public Use
  Company Number: JP-ABBOTT-10P-087-0665930-00

PATIENT
  Sex: Female

DRUGS (1)
  1. HUMIRA [Suspect]
     Indication: RHEUMATOID VASCULITIS
     Route: 058
     Dates: start: 20100726, end: 20100726

REACTIONS (5)
  - DEVICE RELATED INFECTION [None]
  - GENERAL PHYSICAL HEALTH DETERIORATION [None]
  - RHEUMATOID VASCULITIS [None]
  - SEPTIC SHOCK [None]
  - VASCULITIS [None]
